FAERS Safety Report 19403326 (Version 1)
Quarter: 2021Q2

REPORT INFORMATION
  Report Type: Spontaneous
  Country: US (occurrence: US)
  Receive Date: 20210610
  Receipt Date: 20210610
  Transmission Date: 20210717
  Serious: No
  Sender: FDA-Public Use
  Company Number: US-GALDERMA-US2021001102

PATIENT
  Age: 61 Year
  Sex: Male

DRUGS (1)
  1. CLOBETASOL 0.05% SPRAY ACTAVIS [Suspect]
     Active Substance: CLOBETASOL
     Indication: DERMATITIS CONTACT
     Dosage: 0.05%
     Route: 061

REACTIONS (6)
  - Skin discolouration [Unknown]
  - Skin haemorrhage [Unknown]
  - Product use in unapproved indication [Recovered/Resolved]
  - Rash papular [Unknown]
  - Erythema [Unknown]
  - Pruritus [Unknown]
